FAERS Safety Report 15591701 (Version 1)
Quarter: 2018Q4

REPORT INFORMATION
  Report Type: Spontaneous
  Country: US (occurrence: US)
  Receive Date: 20181106
  Receipt Date: 20181106
  Transmission Date: 20190205
  Serious: No
  Sender: FDA-Public Use
  Company Number: US-PFIZER INC-2018441702

PATIENT
  Age: 78 Year
  Sex: Female
  Weight: 92.53 kg

DRUGS (3)
  1. LYRICA [Suspect]
     Active Substance: PREGABALIN
     Indication: SPINAL PAIN
     Dosage: 100 MG, 3X/DAY (100 MILLIGRAM CAPSULES BY MOUTH AT MORNING, MID-DAY, AND BEDTIME)
     Route: 048
  2. MELOXICAM. [Concomitant]
     Active Substance: MELOXICAM
     Indication: NEURALGIA
     Dosage: 15 MG, 1X/DAY(ONE TIME PER DAY IN THE MORNING)
     Route: 048
  3. OXYCODONE [Concomitant]
     Active Substance: OXYCODONE
     Indication: NEURALGIA
     Dosage: 1 DF, AS NEEDED (10-325 MILLIGRAM TABLETS BY MOUTH, ONE TABLET BY MOUTH EVERY 12 HOURS)
     Route: 048

REACTIONS (3)
  - Body height decreased [Unknown]
  - Gait disturbance [Unknown]
  - Weight increased [Unknown]
